FAERS Safety Report 16423703 (Version 4)
Quarter: 2020Q3

REPORT INFORMATION
  Report Type: Spontaneous
  Country: US (occurrence: US)
  Receive Date: 20190613
  Receipt Date: 20200813
  Transmission Date: 20201102
  Serious: No
  Sender: FDA-Public Use
  Company Number: US-GILEAD-2019-0412954

PATIENT
  Age: 29 Year
  Sex: Male
  Weight: 107.94 kg

DRUGS (14)
  1. STRIBILD [Suspect]
     Active Substance: COBICISTAT\ELVITEGRAVIR\EMTRICITABINE\TENOFOVIR DISOPROXIL FUMARATE
     Indication: HIV INFECTION
     Dosage: UNK
     Route: 048
     Dates: start: 201701, end: 201804
  2. STRIBILD [Suspect]
     Active Substance: COBICISTAT\ELVITEGRAVIR\EMTRICITABINE\TENOFOVIR DISOPROXIL FUMARATE
     Dosage: UNK
     Route: 048
     Dates: start: 201701, end: 201804
  3. AMOXICILLIN AND CLAVULANATE POTASSIUM [Concomitant]
     Active Substance: AMOXICILLIN\CLAVULANATE POTASSIUM
  4. CLINDAMYCIN HCL [Concomitant]
     Active Substance: CLINDAMYCIN HYDROCHLORIDE
  5. GENVOYA [Concomitant]
     Active Substance: COBICISTAT\ELVITEGRAVIR\EMTRICITABINE\TENOFOVIR ALAFENAMIDE FUMARATE
  6. DOXYCYCLINE. [Concomitant]
     Active Substance: DOXYCYCLINE
  7. ATRIPLA [Suspect]
     Active Substance: EFAVIRENZ\EMTRICITABINE\TENOFOVIR DISOPROXIL FUMARATE
     Indication: HIV INFECTION
     Dosage: UNK
     Route: 048
     Dates: start: 201504, end: 201701
  8. BICILLIN [BENZATHINE BENZYLPENICILLIN] [Concomitant]
  9. IBUPROFEN. [Concomitant]
     Active Substance: IBUPROFEN
  10. TRAMADOL. [Concomitant]
     Active Substance: TRAMADOL
  11. MUPIROCIN. [Concomitant]
     Active Substance: MUPIROCIN
  12. ANUSOL HC [Concomitant]
     Active Substance: HYDROCORTISONE
  13. INFLUENZA VACCINE [Concomitant]
     Active Substance: INFLUENZA VIRUS VACCINE
  14. HIBICLENS [Concomitant]
     Active Substance: CHLORHEXIDINE GLUCONATE

REACTIONS (8)
  - Bone density decreased [Not Recovered/Not Resolved]
  - Anhedonia [Not Recovered/Not Resolved]
  - Pain [Not Recovered/Not Resolved]
  - Economic problem [Not Recovered/Not Resolved]
  - Injury [Unknown]
  - Tooth loss [Not Recovered/Not Resolved]
  - Emotional distress [Not Recovered/Not Resolved]
  - Anxiety [Not Recovered/Not Resolved]

NARRATIVE: CASE EVENT DATE: 201901
